FAERS Safety Report 18790154 (Version 2)
Quarter: 2022Q1

REPORT INFORMATION
  Report Type: Other
  Country: US (occurrence: US)
  Receive Date: 20210125
  Receipt Date: 20220123
  Transmission Date: 20220424
  Serious: No
  Sender: FDA-Public Use
  Company Number: US-ACORDA-ACO_167337_2020

PATIENT
  Sex: Male

DRUGS (1)
  1. AMPYRA [Suspect]
     Active Substance: DALFAMPRIDINE
     Indication: Product used for unknown indication
     Dosage: 10 MILLIGRAM, Q 12 HRS
     Route: 048

REACTIONS (19)
  - Central nervous system lesion [Unknown]
  - Hypoaesthesia [Unknown]
  - Eye movement disorder [Unknown]
  - Depression [Not Recovered/Not Resolved]
  - Throat irritation [Unknown]
  - Condition aggravated [Unknown]
  - Pain in extremity [Unknown]
  - Nasal discomfort [Unknown]
  - Back pain [Unknown]
  - Product dose omission issue [Unknown]
  - Paraesthesia [Unknown]
  - Balance disorder [Unknown]
  - Burning sensation [Unknown]
  - Product dose omission issue [Unknown]
  - Insomnia [Unknown]
  - Dizziness [Unknown]
  - Fatigue [Unknown]
  - Product dose omission issue [Unknown]
  - Product dose omission issue [Unknown]
